FAERS Safety Report 4601857-1 (Version None)
Quarter: 2005Q1

REPORT INFORMATION
  Report Type: 
  Country: None (occurrence: None)
  Receive Date: 20050131
  Receipt Date: 20041208
  Transmission Date: 20050727
  Serious: No
  Sender: FDA-Public Use
  Company Number: 200419437US

PATIENT
  Age: 36 Year
  Sex: Male
  Weight: 72.7 kg

DRUGS (2)
  1. TELITHROMYCIN (KETEK) TABLETS [Suspect]
     Indication: ACUTE SINUSITIS
     Dosage: 800 MG QD PO
     Route: 048
  2. MOMETASONE FUROATE (NASONEX) [Concomitant]

REACTIONS (1)
  - VISION BLURRED [None]
